FAERS Safety Report 4686317-4 (Version None)
Quarter: 2005Q2

REPORT INFORMATION
  Report Type: 
  Country: None (occurrence: None)
  Receive Date: 20050609
  Receipt Date: 20041219
  Transmission Date: 20051028
  Serious: Yes (Death, Hospitalization)
  Sender: FDA-Public Use
  Company Number: PHEH2004US13613

PATIENT
  Age: 36 Year
  Sex: Male

DRUGS (9)
  1. GLEEVEC [Suspect]
     Indication: CHRONIC MYELOID LEUKAEMIA
     Dosage: UNK, UNK
     Route: 048
     Dates: start: 20020417
  2. GLEEVEC [Suspect]
     Dosage: 400 MG, BID
     Route: 048
     Dates: start: 20031010, end: 20040204
  3. PERCOCET [Suspect]
     Indication: BONE PAIN
     Dates: start: 20030301
  4. ALLOPURINOL [Concomitant]
     Dosage: 300 MG, QD
     Route: 048
     Dates: start: 20031019
  5. ALLOPURINOL [Concomitant]
     Dosage: 300 MG, BID
     Route: 048
     Dates: start: 20040204
  6. CELEBREX [Concomitant]
     Route: 048
     Dates: start: 20031019
  7. DILAUDID [Concomitant]
     Dosage: 1-2 MG Q4H PRN
     Route: 042
     Dates: start: 20030204
  8. SEROQUEL [Concomitant]
     Dosage: 50 MG, TID PRN
     Route: 048
     Dates: start: 20030204
  9. SEROQUEL [Concomitant]
     Dosage: 25 MG, TID
     Route: 048
     Dates: start: 20030204

REACTIONS (35)
  - ABDOMINAL DISTENSION [None]
  - ACUTE LEUKAEMIA [None]
  - ANAEMIA [None]
  - ARTHRALGIA [None]
  - ASCITES [None]
  - BLAST CRISIS IN MYELOGENOUS LEUKAEMIA [None]
  - BONE PAIN [None]
  - CHRONIC LYMPHOCYTIC LEUKAEMIA TRANSFORMATION [None]
  - DENTAL CARIES [None]
  - DISEASE PROGRESSION [None]
  - DRUG INTERACTION [None]
  - DYSPNOEA [None]
  - ENDODONTIC PROCEDURE [None]
  - HAEMOPTYSIS [None]
  - HOMANS' SIGN [None]
  - JOINT EFFUSION [None]
  - LEUKOSTASIS [None]
  - LYMPHADENOPATHY [None]
  - MALIGNANT NEOPLASM PROGRESSION [None]
  - NASAL CONGESTION [None]
  - OEDEMA [None]
  - PAIN [None]
  - PAIN IN EXTREMITY [None]
  - PITTING OEDEMA [None]
  - PLATELET COUNT DECREASED [None]
  - PLATELET DISORDER [None]
  - PRODUCTIVE COUGH [None]
  - REFUSAL OF TREATMENT BY PATIENT [None]
  - SPLENOMEGALY [None]
  - SPUTUM DISCOLOURED [None]
  - TOOTH ABSCESS [None]
  - TOOTH REPAIR [None]
  - TOOTHACHE [None]
  - TREATMENT NONCOMPLIANCE [None]
  - WHITE BLOOD CELL COUNT INCREASED [None]
